FAERS Safety Report 23134126 (Version 1)
Quarter: 2023Q4

REPORT INFORMATION
  Report Type: Spontaneous
  Country: US (occurrence: None)
  Receive Date: 20231031
  Receipt Date: 20231031
  Transmission Date: 20240110
  Serious: Yes (Other)
  Sender: FDA-Public Use
  Company Number: None

PATIENT
  Age: 48 Year
  Sex: Female
  Weight: 84.15 kg

DRUGS (3)
  1. POMALYST [Suspect]
     Active Substance: POMALIDOMIDE
     Dosage: FREQUENCY : DAILY;?
     Route: 048
     Dates: start: 20230427, end: 20231031
  2. DARZALEX [Concomitant]
     Active Substance: DARATUMUMAB
     Dates: start: 20230427
  3. DECADRON [Concomitant]
     Active Substance: DEXAMETHASONE
     Dates: start: 20230427

REACTIONS (1)
  - Neutropenia [None]

NARRATIVE: CASE EVENT DATE: 20231026
